FAERS Safety Report 8298427-3 (Version None)
Quarter: 2012Q2

REPORT INFORMATION
  Report Type: 
  Country: None (occurrence: None)
  Receive Date: 20120417
  Receipt Date: 20120403
  Transmission Date: 20120825
  Serious: Yes (Hospitalization)
  Sender: FDA-Public Use
  Company Number: SULF20120002

PATIENT
  Age: 56 Year
  Sex: Female

DRUGS (3)
  1. SULFASALAZINE [Suspect]
     Indication: COLITIS
     Dosage: 3000 MG, 3 IN 1 D
     Dates: start: 20100701, end: 20100701
  2. KETOROLAC (KETOROLAC) (KETOROLAC) [Concomitant]
  3. IBUPROFEN TABLETS [Concomitant]

REACTIONS (8)
  - THERAPEUTIC RESPONSE DECREASED [None]
  - CRYSTALLURIA [None]
  - CONDITION AGGRAVATED [None]
  - DIALYSIS [None]
  - RENAL TUBULAR DISORDER [None]
  - NEPHROLITHIASIS [None]
  - RENAL FAILURE [None]
  - COLITIS ULCERATIVE [None]
